FAERS Safety Report 11062661 (Version 3)
Quarter: 2015Q2

REPORT INFORMATION
  Report Type: Spontaneous
  Country: US (occurrence: US)
  Receive Date: 20150424
  Receipt Date: 20150601
  Transmission Date: 20150821
  Serious: Yes (Other)
  Sender: FDA-Public Use
  Company Number: US-UNITED THERAPEUTICS-UNT-2015-003855

PATIENT
  Age: 35 Year
  Sex: Female
  Weight: 89.8 kg

DRUGS (4)
  1. REMODULIN [Suspect]
     Active Substance: TREPROSTINIL
     Indication: PULMONARY HYPERTENSION
     Dosage: 0.050 ?G/KG, CONTINUING
     Route: 058
     Dates: start: 20141031
  2. REVATIO [Concomitant]
     Active Substance: SILDENAFIL CITRATE
     Indication: PRODUCT USED FOR UNKNOWN INDICATION
  3. TRACLEER [Concomitant]
     Active Substance: BOSENTAN\BOSENTAN MONOHYDRATE
     Indication: PRODUCT USED FOR UNKNOWN INDICATION
  4. REMODULIN [Suspect]
     Active Substance: TREPROSTINIL
     Dosage: 0.050 ?G/KG, CONTINUING
     Route: 058

REACTIONS (18)
  - Infusion site erythema [Unknown]
  - Nausea [Unknown]
  - Feeling hot [Unknown]
  - Rectal haemorrhage [Unknown]
  - Abdominal pain upper [Unknown]
  - Infusion site warmth [Unknown]
  - Infusion site induration [Unknown]
  - Fatigue [Unknown]
  - Erythema [Unknown]
  - Vaginal haemorrhage [Unknown]
  - Haematuria [Unknown]
  - Infusion site pain [Unknown]
  - Thrombosis in device [Unknown]
  - Pruritus [Unknown]
  - Constipation [Unknown]
  - Infusion site oedema [Unknown]
  - Oedema peripheral [Unknown]
  - Pain [Unknown]

NARRATIVE: CASE EVENT DATE: 201504
